FAERS Safety Report 8704883 (Version 2)
Quarter: 2013Q4

REPORT INFORMATION
  Report Type: Report from Study
  Country: US (occurrence: US)
  Receive Date: 20120803
  Receipt Date: 20131009
  Transmission Date: 20140711
  Serious: Yes (Hospitalization, Other)
  Sender: FDA-Public Use
  Company Number: US-AMGEN-USANI2012047397

PATIENT
  Age: 13 Month
  Sex: Male

DRUGS (26)
  1. ETANERCEPT [Suspect]
     Indication: PRODUCT USED FOR UNKNOWN INDICATION
     Dosage: 50 MG, QWK
     Route: 064
     Dates: start: 20111111, end: 20120714
  2. PRENATAL VITAMINS [Concomitant]
     Dosage: UNK UNK, QD
     Route: 064
     Dates: start: 20111111, end: 20120714
  3. CAFFEINE [Concomitant]
     Dosage: UNK UNK, QD
     Route: 064
     Dates: start: 20111111, end: 20120714
  4. HCG [Concomitant]
     Indication: IN VITRO FERTILISATION
     Dosage: UNK
     Route: 064
     Dates: start: 20111123, end: 20111123
  5. RELAFEN [Concomitant]
     Indication: RHEUMATOID ARTHRITIS
     Dosage: 2000 MG, QD
     Route: 064
     Dates: start: 20111111, end: 20111119
  6. VICODIN [Concomitant]
     Indication: RHEUMATOID ARTHRITIS
     Dosage: 30 MG, QD
     Route: 064
     Dates: start: 20111111, end: 20120616
  7. PREDNISONE [Concomitant]
     Indication: RHEUMATOID ARTHRITIS
     Dosage: 10 MG, QD
     Route: 064
     Dates: start: 20111111, end: 20120714
  8. OMEPRAZOLE [Concomitant]
     Indication: DYSPEPSIA
     Dosage: UNK UNK, QD
     Route: 064
     Dates: start: 20111111, end: 20120714
  9. PROGESTERONE [Concomitant]
     Indication: IN VITRO FERTILISATION
     Dosage: 250 MG, QWK
     Route: 064
     Dates: start: 20111117, end: 20120629
  10. CLOMID [Concomitant]
     Indication: IN VITRO FERTILISATION
     Dosage: UNK UNK, QD
     Route: 064
     Dates: start: 20111115, end: 20111115
  11. ZYRTEC [Concomitant]
     Indication: HYPERSENSITIVITY
     Dosage: 10 MG, QD
     Route: 064
     Dates: start: 20111111, end: 20120714
  12. TYLENOL [Concomitant]
     Indication: RHEUMATOID ARTHRITIS
     Dosage: 3 G, QD
     Route: 064
     Dates: start: 20111111, end: 20120714
  13. BABY ASPIRIN [Concomitant]
     Dosage: 81 MG, QD
     Route: 064
     Dates: start: 20111111, end: 20111203
  14. FOLIC ACID [Concomitant]
     Dosage: 1 MG, QD
     Route: 064
     Dates: start: 20120319, end: 20120714
  15. MACROBID [Concomitant]
     Indication: PNEUMONIA
     Dosage: UNK UNK, QD
     Route: 064
     Dates: start: 20120326, end: 20120402
  16. AMOXICILLIN [Concomitant]
     Indication: SINUSITIS
     Dosage: 1000 MG, QD
     Route: 064
     Dates: start: 20120409, end: 20120413
  17. XOPENEX [Concomitant]
     Dosage: UNK UNK, QD
     Route: 064
     Dates: start: 20120326, end: 20120330
  18. ADVAIR [Concomitant]
     Dosage: UNK UNK, QD
     Route: 064
     Dates: start: 20120326, end: 20120330
  19. TUMS [Concomitant]
     Indication: DYSPEPSIA
     Dosage: UNK
     Route: 064
     Dates: start: 20120319, end: 20120714
  20. IRON [Concomitant]
     Indication: UTERINE HYPERTONUS
     Dosage: 325 MG, BID
     Route: 064
     Dates: start: 20120603, end: 20120714
  21. FLAGYL [Concomitant]
     Indication: VAGINITIS BACTERIAL
     Dosage: 500 MG, BID
     Route: 064
     Dates: start: 20120604, end: 20120609
  22. BETAMETHASONE [Concomitant]
     Indication: PREMATURE LABOUR
     Dosage: UNK
     Route: 064
     Dates: start: 20120603, end: 20120604
  23. MAGNESIUM [Concomitant]
     Indication: PREMATURE LABOUR
     Dosage: UNK UNK, QD
     Route: 064
     Dates: start: 20120603, end: 20120603
  24. TERBUTALINE [Concomitant]
     Indication: PREMATURE LABOUR
     Dosage: UNK UNK, QD
     Route: 064
     Dates: start: 20120603, end: 20120620
  25. Z-PAK [Concomitant]
     Indication: PNEUMONIA
     Dosage: UNK UNK, QD
     Route: 064
     Dates: start: 20120326, end: 20120329
  26. DHA [Concomitant]
     Dosage: 200 MG, QD
     Route: 064
     Dates: start: 20111111, end: 20120714

REACTIONS (2)
  - Thrombocytopenia [Unknown]
  - Pneumonia bacterial [Unknown]
